FAERS Safety Report 7563113-1 (Version None)
Quarter: 2011Q2

REPORT INFORMATION
  Report Type: 
  Country: None (occurrence: None)
  Receive Date: 20110622
  Receipt Date: 20110615
  Transmission Date: 20111010
  Serious: Yes (Other)
  Sender: FDA-Public Use
  Company Number: FR-PFIZER INC-2010016139

PATIENT
  Sex: Female
  Weight: 53 kg

DRUGS (1)
  1. EXEMESTANE [Suspect]
     Dosage: UNK

REACTIONS (5)
  - ARTHRALGIA [None]
  - DEPRESSION [None]
  - OSTEOPOROSIS [None]
  - DYSPNOEA [None]
  - DEAFNESS [None]
